FAERS Safety Report 6569244-7 (Version None)
Quarter: 2010Q1

REPORT INFORMATION
  Report Type: 
  Country: None (occurrence: None)
  Receive Date: 20100201
  Receipt Date: 20100201
  Transmission Date: 20100710
  Serious: Yes (Hospitalization, Other)
  Sender: FDA-Public Use
  Company Number: None

PATIENT
  Age: 12 Year
  Sex: Female
  Weight: 42.6381 kg

DRUGS (2)
  1. YAZ [Suspect]
     Indication: HAEMORRHAGE
     Dosage: ONE PILL DAILY PO
     Route: 048
     Dates: start: 20071201, end: 20080801
  2. YAZ [Suspect]
     Indication: MUSCLE SPASMS
     Dosage: ONE PILL DAILY PO
     Route: 048
     Dates: start: 20071201, end: 20080801

REACTIONS (3)
  - GALLBLADDER NON-FUNCTIONING [None]
  - VOMITING [None]
  - WEIGHT DECREASED [None]
